FAERS Safety Report 8036882-4 (Version None)
Quarter: 2012Q1

REPORT INFORMATION
  Report Type: 
  Country: None (occurrence: None)
  Receive Date: 20120111
  Receipt Date: 20120109
  Transmission Date: 20120608
  Serious: No
  Sender: FDA-Public Use
  Company Number: US-PFIZER INC-2012006405

PATIENT
  Sex: Male
  Weight: 118 kg

DRUGS (13)
  1. OXYCODONE [Concomitant]
     Dosage: UNK
  2. TRILIPIX [Concomitant]
     Dosage: UNK
  3. LANTUS [Concomitant]
     Dosage: UNK
  4. LASIX [Concomitant]
     Dosage: UNK
  5. CRESTOR [Concomitant]
     Dosage: UNK
  6. AMLODIPINE [Concomitant]
     Dosage: UNK
  7. CLONIDINE [Concomitant]
     Dosage: UNK
  8. NOVOLOG [Concomitant]
     Dosage: UNK
  9. METOPROLOL [Concomitant]
     Dosage: UNK
  10. LACTULOSE [Concomitant]
     Dosage: UNK
  11. GENOTROPIN [Suspect]
     Indication: GROWTH HORMONE DEFICIENCY
     Dosage: UNK, 1X/DAY
     Route: 058
     Dates: start: 20111004
  12. POTASSIUM [Concomitant]
     Dosage: UNK
  13. TESTOSTERONE [Concomitant]
     Dosage: UNK

REACTIONS (1)
  - CONSTIPATION [None]
